FAERS Safety Report 7964226-2 (Version None)
Quarter: 2011Q4

REPORT INFORMATION
  Report Type: 
  Country: None (occurrence: None)
  Receive Date: 20111205
  Receipt Date: 20111125
  Transmission Date: 20120403
  Serious: Yes (Other)
  Sender: FDA-Public Use
  Company Number: 2011-FR-0037

PATIENT
  Age: 95 Year
  Sex: Female

DRUGS (2)
  1. DURAGESIC-100 [Concomitant]
  2. FENTANYL [Suspect]
     Indication: HEADACHE
     Dosage: 100 MCG X 1 PER AS REQUIRED
     Route: 048

REACTIONS (3)
  - OFF LABEL USE [None]
  - TOXICITY TO VARIOUS AGENTS [None]
  - CONFUSIONAL STATE [None]
